FAERS Safety Report 9355961 (Version 24)
Quarter: 2016Q3

REPORT INFORMATION
  Report Type: Spontaneous
  Country: CA (occurrence: CA)
  Receive Date: 20130619
  Receipt Date: 20160801
  Transmission Date: 20161109
  Serious: Yes (Hospitalization)
  Sender: FDA-Public Use
  Company Number: CA-ROCHE-1238075

PATIENT
  Age: 51 Year
  Sex: Male
  Weight: 60 kg

DRUGS (9)
  1. XOLAIR [Suspect]
     Active Substance: OMALIZUMAB
     Dosage: UNK
     Route: 058
     Dates: start: 20150714
  2. XOLAIR [Suspect]
     Active Substance: OMALIZUMAB
     Dosage: UNK
     Route: 058
     Dates: start: 20151209, end: 20151209
  3. VENTOLIN [Concomitant]
     Active Substance: ALBUTEROL SULFATE
     Indication: BRONCHOSPASM
     Route: 065
  4. XOLAIR [Suspect]
     Active Substance: OMALIZUMAB
     Indication: ASTHMA
     Dosage: 150/5MG/ML
     Route: 058
     Dates: start: 20121128
  5. XOLAIR [Suspect]
     Active Substance: OMALIZUMAB
     Dosage: UNK
     Route: 058
     Dates: start: 20131205
  6. SYMBICORT [Concomitant]
     Active Substance: BUDESONIDE\FORMOTEROL FUMARATE DIHYDRATE
     Indication: PRODUCT USED FOR UNKNOWN INDICATION
     Route: 065
  7. XOLAIR [Suspect]
     Active Substance: OMALIZUMAB
     Dosage: UNK
     Route: 058
     Dates: start: 20150803
  8. SPIRIVA [Concomitant]
     Active Substance: TIOTROPIUM BROMIDE MONOHYDRATE
     Indication: PRODUCT USED FOR UNKNOWN INDICATION
     Route: 065
  9. SINGULAIR [Concomitant]
     Active Substance: MONTELUKAST SODIUM
     Indication: PRODUCT USED FOR UNKNOWN INDICATION
     Route: 065

REACTIONS (23)
  - Cervical vertebral fracture [Unknown]
  - Fall [Unknown]
  - Malaise [Unknown]
  - Pneumonia [Unknown]
  - Spinal pain [Unknown]
  - Back pain [Unknown]
  - Heart rate increased [Not Recovered/Not Resolved]
  - Weight increased [Unknown]
  - Fatigue [Unknown]
  - Asthma [Unknown]
  - Sinusitis [Unknown]
  - Sinus congestion [Unknown]
  - Ligament sprain [Unknown]
  - Respiratory disorder [Unknown]
  - Parosmia [Unknown]
  - Respiratory rate increased [Unknown]
  - Chronic obstructive pulmonary disease [Unknown]
  - Headache [Not Recovered/Not Resolved]
  - Infection [Unknown]
  - Rhinorrhoea [Unknown]
  - Hypersensitivity [Unknown]
  - Dysphonia [Unknown]
  - Migraine [Unknown]

NARRATIVE: CASE EVENT DATE: 2013
